FAERS Safety Report 7231752-3 (Version None)
Quarter: 2011Q1

REPORT INFORMATION
  Report Type: 
  Country: None (occurrence: None)
  Receive Date: 20110107
  Receipt Date: 20101222
  Transmission Date: 20110831
  Serious: Yes (Hospitalization)
  Sender: FDA-Public Use
  Company Number: 2009001069

PATIENT
  Age: 75 Year
  Sex: Male
  Weight: 70.7 kg

DRUGS (10)
  1. LOPERAMIDE HCL [Concomitant]
  2. FLUMETHOLON (FLUOROMETHOLONE) [Concomitant]
  3. ERLOTINIB (ERLOTINIB) (TABLET) (ERLOTINIB) [Suspect]
     Indication: NON-SMALL CELL LUNG CANCER
     Dosage: (150 MG, 1 X PER DAY), ORAL
     Route: 048
     Dates: start: 20090226, end: 20090311
  4. GASTER (FAMOTIDINE) [Concomitant]
  5. EURODIN (ESTAZOLAM) [Concomitant]
  6. ADALAT [Concomitant]
  7. LASIX [Concomitant]
  8. ALLEGRA [Concomitant]
  9. PLETAL [Concomitant]
  10. ASPIRIN [Concomitant]

REACTIONS (10)
  - PERICARDIAL EFFUSION [None]
  - NEOPLASM MALIGNANT [None]
  - PERICARDITIS MALIGNANT [None]
  - DIARRHOEA [None]
  - PLEURAL EFFUSION [None]
  - MALIGNANT PLEURAL EFFUSION [None]
  - CARDIAC FAILURE CONGESTIVE [None]
  - NON-SMALL CELL LUNG CANCER METASTATIC [None]
  - BALANCE DISORDER [None]
  - DRUG ERUPTION [None]
